FAERS Safety Report 5039727-X (Version None)
Quarter: 2006Q2

REPORT INFORMATION
  Report Type: 
  Country: None (occurrence: None)
  Receive Date: 20060601
  Receipt Date: 20060119
  Transmission Date: 20061013
  Serious: No
  Sender: FDA-Public Use
  Company Number: 2006PV007332

PATIENT
  Age: 63 Year
  Sex: Female
  Weight: 83.4619 kg

DRUGS (1)
  1. BYETTA [Suspect]
     Dosage: 5 MCG;BID;SC
     Route: 058
     Dates: start: 20060105

REACTIONS (2)
  - NAUSEA [None]
  - WEIGHT DECREASED [None]
